FAERS Safety Report 25003630 (Version 2)
Quarter: 2025Q1

REPORT INFORMATION
  Report Type: Spontaneous
  Country: US (occurrence: US)
  Receive Date: 20250224
  Receipt Date: 20250314
  Transmission Date: 20250408
  Serious: No
  Sender: PFIZER
  Company Number: US-PFIZER INC-202500031480

PATIENT

DRUGS (1)
  1. GENOTROPIN [Suspect]
     Active Substance: SOMATROPIN
     Dates: start: 20250210

REACTIONS (1)
  - Device power source issue [Unknown]

NARRATIVE: CASE EVENT DATE: 20250210
